FAERS Safety Report 5322192-2 (Version None)
Quarter: 2007Q2

REPORT INFORMATION
  Report Type: 
  Country: None (occurrence: None)
  Receive Date: 20070511
  Receipt Date: 20070502
  Transmission Date: 20071010
  Serious: Yes (Other)
  Sender: FDA-Public Use
  Company Number: US-AMGEN-US187725

PATIENT
  Sex: Male
  Weight: 70.4 kg

DRUGS (4)
  1. PROCRIT [Suspect]
     Indication: PRE-EXISTING DISEASE
     Route: 058
     Dates: start: 20050401, end: 20060724
  2. INTERFERON [Concomitant]
     Route: 065
     Dates: start: 20050101, end: 20051231
  3. PROGRAF [Concomitant]
     Route: 048
     Dates: start: 20020101
  4. RIBAVIRIN [Concomitant]
     Dates: start: 20050101, end: 20051231

REACTIONS (3)
  - ANTI-ERYTHROPOIETIN ANTIBODY POSITIVE [None]
  - APLASIA PURE RED CELL [None]
  - THERAPEUTIC RESPONSE DECREASED [None]
